FAERS Safety Report 22118626 (Version 1)
Quarter: 2023Q1

REPORT INFORMATION
  Report Type: Spontaneous
  Country: US (occurrence: US)
  Receive Date: 20230321
  Receipt Date: 20230321
  Transmission Date: 20230418
  Serious: No
  Sender: FDA-Public Use
  Company Number: US-JNJFOC-20230345459

PATIENT
  Age: 52 Year
  Sex: Female
  Weight: 150.73 kg

DRUGS (1)
  1. INVEGA [Suspect]
     Active Substance: PALIPERIDONE
     Indication: Product used for unknown indication
     Route: 048

REACTIONS (5)
  - Weight increased [Unknown]
  - Blood glucose increased [Unknown]
  - Fatigue [Unknown]
  - Abdominal distension [Unknown]
  - Cardiovascular disorder [Unknown]
